FAERS Safety Report 16259896 (Version 1)
Quarter: 2019Q2

REPORT INFORMATION
  Report Type: Spontaneous
  Country: US (occurrence: US)
  Receive Date: 20190326
  Receipt Date: 20190326
  Transmission Date: 20190711
  Serious: No
  Sender: FDA-Public Use
  Company Number: None

PATIENT
  Age: 65 Year
  Sex: Male
  Weight: 77 kg

DRUGS (1)
  1. HEPARIN [Suspect]
     Active Substance: HEPARIN SODIUM
     Indication: PULMONARY EMBOLISM
     Dates: start: 20190130, end: 20190130

REACTIONS (3)
  - Haemorrhage [None]
  - Gastrointestinal haemorrhage [None]
  - Colitis ischaemic [None]

NARRATIVE: CASE EVENT DATE: 20190130
